FAERS Safety Report 5865758-3 (Version None)
Quarter: 2008Q3

REPORT INFORMATION
  Report Type: 
  Country: None (occurrence: None)
  Receive Date: 20080829
  Receipt Date: 20080822
  Transmission Date: 20090109
  Serious: Yes (Other)
  Sender: FDA-Public Use
  Company Number: PHBS2008TW05502

PATIENT
  Age: 54 Year
  Sex: Male

DRUGS (1)
  1. DICLOFENAC [Suspect]
     Indication: OEDEMA PERIPHERAL
     Dosage: 50 MG, TID

REACTIONS (10)
  - AUTOIMMUNE DISORDER [None]
  - BURNING SENSATION [None]
  - CYANOSIS [None]
  - JOINT SWELLING [None]
  - NUCLEAR MAGNETIC RESONANCE IMAGING ABNORMAL [None]
  - OEDEMA PERIPHERAL [None]
  - PARAESTHESIA [None]
  - PITTING OEDEMA [None]
  - SERONEGATIVE ARTHRITIS [None]
  - SKIN DISCOLOURATION [None]
